FAERS Safety Report 11374399 (Version 1)
Quarter: 2015Q3

REPORT INFORMATION
  Report Type: Report from Study
  Country: DE (occurrence: DE)
  Receive Date: 20150813
  Receipt Date: 20150813
  Transmission Date: 20151125
  Serious: Yes (Hospitalization, Other)
  Sender: FDA-Public Use
  Company Number: PHHY2015DE095892

PATIENT
  Age: 63 Year
  Sex: Female
  Weight: 47.8 kg

DRUGS (3)
  1. ZYKADIA [Suspect]
     Active Substance: CERITINIB
     Indication: NON-SMALL CELL LUNG CANCER
     Dosage: 750 MG
     Route: 048
     Dates: start: 20150616, end: 20150709
  2. CALCIUM +D3 [Concomitant]
     Active Substance: CALCIUM\CHOLECALCIFEROL
     Indication: METASTASES TO BONE
     Dosage: BID (0-0-1)
     Route: 065
     Dates: start: 20150713
  3. CLEXANE [Concomitant]
     Active Substance: ENOXAPARIN SODIUM
     Indication: THROMBOSIS PROPHYLAXIS
     Dosage: UNK
     Route: 065
     Dates: start: 20150710, end: 20150720

REACTIONS (16)
  - Oedema peripheral [Not Recovered/Not Resolved]
  - Hypokalaemia [Recovered/Resolved]
  - Vomiting [Recovered/Resolved]
  - Decreased appetite [Unknown]
  - Fatigue [Recovered/Resolved with Sequelae]
  - Dry skin [Not Recovered/Not Resolved]
  - Fatigue [Unknown]
  - Diarrhoea [Recovered/Resolved]
  - Impaired healing [Not Recovered/Not Resolved]
  - General physical health deterioration [Not Recovered/Not Resolved]
  - Fatigue [Recovered/Resolved with Sequelae]
  - Cachexia [Not Recovered/Not Resolved]
  - Hypoalbuminaemia [Recovered/Resolved]
  - Nausea [Not Recovered/Not Resolved]
  - Decreased appetite [Recovered/Resolved with Sequelae]
  - Bite [Not Recovered/Not Resolved]

NARRATIVE: CASE EVENT DATE: 20150617
